FAERS Safety Report 20310449 (Version 1)
Quarter: 2022Q1

REPORT INFORMATION
  Report Type: Spontaneous
  Country: NL (occurrence: NL)
  Receive Date: 20220107
  Receipt Date: 20220107
  Transmission Date: 20220423
  Serious: Yes (Other)
  Sender: FDA-Public Use
  Company Number: None

PATIENT
  Age: 70 Year
  Sex: Male
  Weight: 76 kg

DRUGS (6)
  1. DUTASTERIDE\TAMSULOSIN [Suspect]
     Active Substance: DUTASTERIDE\TAMSULOSIN
     Indication: Dysuria
     Dosage: 1 DOSAGE FORMS DAILY; DUTASTERIDE/TAMSULOSIN CAPSULE 0.5/0.4MG / BRAND NAME NOT SPECIFIED
     Route: 065
     Dates: start: 20211214, end: 20211215
  2. CLOPIDOGREL BESILATE [Concomitant]
     Active Substance: CLOPIDOGREL BESILATE
     Dosage: 75 MG, CLOPIDOGREL TABLET 75MG / GREPID TABLET FILM COATED 75MG, THERAPY START AND END DATE: ASKU
  3. ENALAPRIL [Concomitant]
     Active Substance: ENALAPRIL
     Dosage: 10 MG, THERAPY START AND END DATE: ASKU, ENALAPRIL TABLET 10MG / BRAND NAME NOT SPECIFIED
  4. ROSUVASTATIN [Concomitant]
     Active Substance: ROSUVASTATIN
     Dosage: 40 MG, THERAPY START AND END DATE: ASKU, ROSUVASTATINE TABLET 40MG / BRAND NAME NOT SPECIFIED
  5. EZETIMIBE [Concomitant]
     Active Substance: EZETIMIBE
     Dosage: 10 MG, THERAPY START AND END DATE: ASKU, EZETIMIB TABLET 10MG / BRAND NAME NOT SPECIFIED
  6. PANTOZOL [Concomitant]
     Active Substance: PANTOPRAZOLE SODIUM
     Dosage: 40 MG, THERAPY START AND END DATE: ASKU, PANTOPRAZOL TABLET MSR 40MG / PANTOZOL TABLET MSR 40MG

REACTIONS (2)
  - Seizure [Recovered/Resolved]
  - Dizziness [Recovered/Resolved]

NARRATIVE: CASE EVENT DATE: 20211215
